FAERS Safety Report 19011541 (Version 3)
Quarter: 2022Q2

REPORT INFORMATION
  Report Type: Spontaneous
  Country: ES (occurrence: ES)
  Receive Date: 20210316
  Receipt Date: 20220404
  Transmission Date: 20220720
  Serious: Yes (Hospitalization, Disabling, Other)
  Sender: FDA-Public Use
  Company Number: ES-ESTEVE-2021-00042

PATIENT
  Age: 88 Year
  Sex: Male

DRUGS (12)
  1. SERTRALINE [Interacting]
     Active Substance: SERTRALINE HYDROCHLORIDE
     Indication: Apathy
     Dosage: 50 MG, DAILY
  2. SERTRALINE [Interacting]
     Active Substance: SERTRALINE HYDROCHLORIDE
     Indication: Anxiety
     Dosage: 25 MG, DAILY
  3. SERTRALINE [Interacting]
     Active Substance: SERTRALINE HYDROCHLORIDE
     Indication: Depressed mood
     Dosage: 75 MG, DAILY
  4. ENALAPRIL\HYDROCHLOROTHIAZIDE [Interacting]
     Active Substance: ENALAPRIL\HYDROCHLOROTHIAZIDE
     Dosage: 20 MG/12.5MG, 1-0-1/2
  5. BROMAZEPAM [Concomitant]
     Active Substance: BROMAZEPAM
     Dosage: 1.5 MG AT NIGHT
  6. ASPIRIN [Concomitant]
     Active Substance: ASPIRIN
     Dosage: 300 MG, DAILY
  7. NITROGLYCERIN [Concomitant]
     Active Substance: NITROGLYCERIN
     Dosage: 5 MG, DAILY
  8. ATENOLOL [Concomitant]
     Active Substance: ATENOLOL
     Dosage: 25 MG, DAILY
  9. SIMVASTATIN [Concomitant]
     Active Substance: SIMVASTATIN
     Dosage: 20 MG, DAILY
  10. LEVOTHYROXINE [Concomitant]
     Active Substance: LEVOTHYROXINE
     Dosage: 50 MCG-75 MCG-0
  11. TAMSULOSIN [Concomitant]
     Active Substance: TAMSULOSIN
     Dosage: 0.4 MG, DAILY
  12. OMEPRAZOLE [Concomitant]
     Active Substance: OMEPRAZOLE
     Dosage: 40 MG, DAILY

REACTIONS (12)
  - Inappropriate antidiuretic hormone secretion [Recovered/Resolved]
  - Drug interaction [Recovered/Resolved]
  - Hyponatraemia [Unknown]
  - Depressive symptom [Unknown]
  - Urinary incontinence [Unknown]
  - Disorientation [Unknown]
  - Clumsiness [Unknown]
  - Bradyphrenia [Unknown]
  - Psychomotor retardation [Unknown]
  - Therapy non-responder [Unknown]
  - Somnolence [Unknown]
  - Incoherent [Unknown]
